FAERS Safety Report 6450039-X (Version None)
Quarter: 2009Q4

REPORT INFORMATION
  Report Type: 
  Country: None (occurrence: None)
  Receive Date: 20091123
  Receipt Date: 20091112
  Transmission Date: 20100525
  Serious: Yes (Other)
  Sender: FDA-Public Use
  Company Number: US-JNJFOC-20090402028

PATIENT
  Sex: Male
  Weight: 112.49 kg

DRUGS (6)
  1. RISPERDAL [Suspect]
     Indication: BIPOLAR DISORDER
     Route: 048
  2. SEROQUEL [Suspect]
     Indication: DRUG USE FOR UNKNOWN INDICATION
  3. GABAPENTIN [Concomitant]
  4. LITHIUM CARBONATE [Concomitant]
  5. DILANTIN [Concomitant]
  6. CITALOPRAM HYDROBROMIDE [Concomitant]

REACTIONS (3)
  - DRUG INEFFECTIVE [None]
  - INSULIN-REQUIRING TYPE 2 DIABETES MELLITUS [None]
  - WEIGHT DECREASED [None]
